FAERS Safety Report 17492174 (Version 1)
Quarter: 2020Q1

REPORT INFORMATION
  Report Type: Spontaneous
  Country: CA (occurrence: CA)
  Receive Date: 20200304
  Receipt Date: 20200304
  Transmission Date: 20200409
  Serious: Yes (Disabling)
  Sender: FDA-Public Use
  Company Number: CA-TEVA-2020-CA-1191923

PATIENT
  Age: 48 Year
  Sex: Male
  Weight: 96 kg

DRUGS (1)
  1. NOVO-OLANZAPINE OD [Suspect]
     Active Substance: OLANZAPINE
     Indication: SCHIZOPHRENIA
     Dosage: 15 MILLIGRAM DAILY;
     Route: 060

REACTIONS (5)
  - Dizziness [Recovered/Resolved]
  - Hallucination, auditory [Recovered/Resolved]
  - Panic attack [Recovered/Resolved]
  - Asthenia [Recovered/Resolved]
  - Condition aggravated [Recovered/Resolved]
